FAERS Safety Report 7744399-7 (Version None)
Quarter: 2011Q3

REPORT INFORMATION
  Report Type: 
  Country: None (occurrence: None)
  Receive Date: 20110912
  Receipt Date: 20110907
  Transmission Date: 20111222
  Serious: Yes (Other)
  Sender: FDA-Public Use
  Company Number: JP-PFIZER INC-2011208744

PATIENT
  Age: 74 Year
  Sex: Female

DRUGS (9)
  1. FUROSEMIDE [Concomitant]
     Indication: ATRIAL FIBRILLATION
  2. DIGOXIN [Suspect]
     Indication: CARDIAC FAILURE
  3. FUROSEMIDE [Concomitant]
     Indication: DIABETES MELLITUS
     Dosage: 40 MG, UNK
  4. EPLERENONE [Suspect]
     Indication: CARDIAC FAILURE
  5. FUROSEMIDE [Concomitant]
     Indication: CARDIAC FAILURE
  6. DIGOXIN [Suspect]
     Indication: DIABETES MELLITUS
     Dosage: 0.25 MG, UNK
  7. EPLERENONE [Suspect]
     Indication: ATRIAL FIBRILLATION
  8. EPLERENONE [Suspect]
     Indication: DIABETES MELLITUS
     Dosage: 50 MG, UNK
     Route: 048
  9. DIGOXIN [Suspect]
     Indication: ATRIAL FIBRILLATION

REACTIONS (3)
  - TOXICITY TO VARIOUS AGENTS [None]
  - VENTRICULAR TACHYCARDIA [None]
  - HYPERKALAEMIA [None]
